FAERS Safety Report 14149182 (Version 3)
Quarter: 2018Q1

REPORT INFORMATION
  Report Type: Spontaneous
  Country: HU (occurrence: HU)
  Receive Date: 20171101
  Receipt Date: 20180123
  Transmission Date: 20180508
  Serious: Yes (Other)
  Sender: FDA-Public Use
  Company Number: HU-SUN PHARMACEUTICAL INDUSTRIES LTD-2017R1-153679

PATIENT
  Age: 81 Year
  Sex: Female

DRUGS (1)
  1. DOCETAXEL. [Suspect]
     Active Substance: DOCETAXEL
     Indication: ADENOCARCINOMA
     Dosage: 4 CYCLES
     Route: 065
     Dates: start: 201111

REACTIONS (4)
  - Peroneal nerve palsy [Recovering/Resolving]
  - Quality of life decreased [Recovering/Resolving]
  - Neuropathy peripheral [Recovering/Resolving]
  - Therapeutic response decreased [Unknown]
